FAERS Safety Report 5865890-4 (Version None)
Quarter: 2008Q3

REPORT INFORMATION
  Report Type: 
  Country: None (occurrence: None)
  Receive Date: 20080829
  Receipt Date: 20071227
  Transmission Date: 20090109
  Serious: Yes (Other)
  Sender: FDA-Public Use
  Company Number: US-PFIZER INC-2007092454

PATIENT
  Age: 56 Year
  Sex: Female
  Weight: 84.09 kg

DRUGS (9)
  1. LIPITOR [Suspect]
     Indication: BLOOD CHOLESTEROL INCREASED
     Route: 048
     Dates: start: 20071017, end: 20071114
  2. SYNTHROID [Concomitant]
  3. PLAVIX [Concomitant]
  4. ZETIA [Concomitant]
  5. ISOSORBIDE MONONITRATE [Concomitant]
  6. TOPROL-XL [Concomitant]
  7. CYMBALTA [Concomitant]
  8. LYRICA [Concomitant]
  9. ZYRTEC [Concomitant]

REACTIONS (2)
  - ABDOMINAL RIGIDITY [None]
  - DYSPNOEA [None]
